FAERS Safety Report 6574346-5 (Version None)
Quarter: 2010Q1

REPORT INFORMATION
  Report Type: 
  Country: None (occurrence: None)
  Receive Date: 20100208
  Receipt Date: 20100129
  Transmission Date: 20100710
  Serious: Yes (Hospitalization)
  Sender: FDA-Public Use
  Company Number: DE-ABBOTT-10P-062-0623101-00

PATIENT
  Age: 28 Year
  Sex: Female

DRUGS (3)
  1. ERGENYL TABLETS [Suspect]
     Indication: CONVULSION
     Route: 048
     Dates: start: 20091212, end: 20091218
  2. MSI [Concomitant]
     Indication: TUMOUR PAIN
     Dates: start: 20091217, end: 20100105
  3. DELIX [Concomitant]
     Indication: HYPERTENSION
     Dates: start: 20091101

REACTIONS (6)
  - AGGRESSION [None]
  - DISORIENTATION [None]
  - ENCEPHALOPATHY [None]
  - HALLUCINATION, AUDITORY [None]
  - HALLUCINATION, VISUAL [None]
  - PSYCHOMOTOR HYPERACTIVITY [None]
